FAERS Safety Report 7172781-8 (Version None)
Quarter: 2010Q4

REPORT INFORMATION
  Report Type: 
  Country: None (occurrence: None)
  Receive Date: 20101219
  Receipt Date: 20100212
  Transmission Date: 20110411
  Serious: No
  Sender: FDA-Public Use
  Company Number: US-AMGEN-KDL392595

PATIENT

DRUGS (8)
  1. ENBREL [Suspect]
     Indication: PRODUCT USED FOR UNKNOWN INDICATION
     Dosage: 50 MG, QWK
     Route: 058
  2. DULOXETIME HYDROCHLORIDE [Concomitant]
     Dosage: 60 MG, UNK
  3. PREMARIN WITH METHYLTESTOSTERONE [Concomitant]
     Dosage: UNK UNK, UNK
  4. PROMETRIUM [Concomitant]
     Dosage: 100 MG, UNK
  5. FOLIC ACID [Concomitant]
     Dosage: 1 MG, UNK
  6. ESOMEPRAZOLE MAGNESIUM [Concomitant]
     Dosage: 40 MG, UNK
  7. FLUOXETINE HYDROCHLORIDE [Concomitant]
     Dosage: 40 MG, UNK
  8. HYDROCODONE BITARTRATE AND ACETAMINOPHEN [Concomitant]
     Dosage: 325 MG, UNK

REACTIONS (2)
  - DIARRHOEA [None]
  - HEADACHE [None]
